FAERS Safety Report 8761976 (Version 2)
Quarter: 2012Q4

REPORT INFORMATION
  Report Type: 
  Country: US (occurrence: US)
  Receive Date: 20120830
  Receipt Date: 20121018
  Transmission Date: 20130627
  Serious: Yes (Death, Disabling, Other)
  Sender: FDA-Public Use
  Company Number: US-TEVA-356470USA

PATIENT
  Sex: Female

DRUGS (2)
  1. ALENDRONIC ACID [Suspect]
     Indication: OSTEOPOROSIS
  2. FOSAMAX [Suspect]

REACTIONS (4)
  - Femur fracture [Fatal]
  - Bone disorder [Fatal]
  - Stress fracture [Fatal]
  - Low turnover osteopathy [Fatal]
